FAERS Safety Report 6943295-2 (Version None)
Quarter: 2010Q3

REPORT INFORMATION
  Report Type: 
  Country: None (occurrence: None)
  Receive Date: 20100825
  Receipt Date: 20100825
  Transmission Date: 20110219
  Serious: Yes (Hospitalization)
  Sender: FDA-Public Use
  Company Number: None

PATIENT
  Sex: Female
  Weight: 95.2554 kg

DRUGS (1)
  1. CEPHALEXIN [Suspect]
     Indication: SINUSITIS
     Dosage: 500MG 3 TIMES DAILY PO
     Route: 048
     Dates: start: 20100823, end: 20100823

REACTIONS (4)
  - DIZZINESS [None]
  - DRUG HYPERSENSITIVITY [None]
  - FEELING HOT [None]
  - VOMITING [None]
